FAERS Safety Report 4703600-4 (Version None)
Quarter: 2005Q2

REPORT INFORMATION
  Report Type: 
  Country: None (occurrence: None)
  Receive Date: 20050630
  Receipt Date: 20050128
  Transmission Date: 20051028
  Serious: Yes (Death, Life-Threatening, Hospitalization, Disabling, Other)
  Sender: FDA-Public Use
  Company Number: US-ABBOTT-05P-163-0288983-00

PATIENT
  Sex: Male
  Weight: 78.8 kg

DRUGS (3)
  1. ABT-510 [Suspect]
     Indication: LYMPHOMA
     Route: 058
     Dates: start: 20050120, end: 20050131
  2. MORPHINE SULFATE [Concomitant]
     Indication: ABDOMINAL PAIN
     Dates: start: 20050101, end: 20050127
  3. FLUCONAZOLE [Concomitant]
     Indication: CANDIDIASIS
     Dates: start: 20050120, end: 20050206

REACTIONS (20)
  - ASPIRATION TRACHEAL [None]
  - ATELECTASIS [None]
  - CONSTIPATION [None]
  - CORYNEBACTERIUM INFECTION [None]
  - CULTURE URINE POSITIVE [None]
  - DEEP VEIN THROMBOSIS [None]
  - DISEASE PROGRESSION [None]
  - DRY MOUTH [None]
  - ELECTROCARDIOGRAM T WAVE ABNORMAL [None]
  - GASTROINTESTINAL MOTILITY DISORDER [None]
  - HIATUS HERNIA [None]
  - INFLAMMATION [None]
  - LYMPHADENOPATHY [None]
  - OESOPHAGEAL MASS [None]
  - OESOPHAGEAL ULCER [None]
  - PEPTIC ULCER [None]
  - PULMONARY EMBOLISM [None]
  - RIGHT VENTRICULAR FAILURE [None]
  - SINUS TACHYCARDIA [None]
  - SUPRAVENTRICULAR EXTRASYSTOLES [None]
